FAERS Safety Report 24057473 (Version 1)
Quarter: 2024Q3

REPORT INFORMATION
  Report Type: Report from Study
  Country: US (occurrence: US)
  Receive Date: 20240706
  Receipt Date: 20240706
  Transmission Date: 20241017
  Serious: Yes (Other)
  Sender: JAZZ
  Company Number: US-JAZZ-2024-US-009045

PATIENT
  Sex: Male

DRUGS (2)
  1. EPIDIOLEX [Suspect]
     Active Substance: CANNABIDIOL
     Indication: Product used for unknown indication
     Dosage: 1.5 MILLILITER, BID
     Route: 048
     Dates: start: 20230701
  2. EPIDIOLEX [Suspect]
     Active Substance: CANNABIDIOL
     Dosage: 2 MILLILITER, BID
     Dates: start: 20230721

REACTIONS (4)
  - Generalised tonic-clonic seizure [Unknown]
  - Seizure [Unknown]
  - Vomiting [Unknown]
  - Gastrooesophageal reflux disease [Unknown]
